FAERS Safety Report 16279189 (Version 1)
Quarter: 2019Q2

REPORT INFORMATION
  Report Type: Spontaneous
  Country: CA (occurrence: CA)
  Receive Date: 20190506
  Receipt Date: 20190506
  Transmission Date: 20190711
  Serious: Yes (Disabling)
  Sender: FDA-Public Use
  Company Number: CA-TEVA-2019-CA-1045251

PATIENT
  Age: 40 Year
  Sex: Male
  Weight: 81.72 kg

DRUGS (2)
  1. TEVA-OLANZAPINE [Suspect]
     Active Substance: OLANZAPINE
     Indication: ANXIETY
  2. TEVA-OLANZAPINE [Suspect]
     Active Substance: OLANZAPINE
     Indication: PSYCHOTIC DISORDER
     Dosage: 5 MILLIGRAM DAILY;
     Route: 048

REACTIONS (3)
  - Immobile [Recovering/Resolving]
  - Peripheral swelling [Recovering/Resolving]
  - Heart rate irregular [Recovering/Resolving]
